FAERS Safety Report 19213554 (Version 4)
Quarter: 2021Q3

REPORT INFORMATION
  Report Type: Spontaneous
  Country: CA (occurrence: CA)
  Receive Date: 20210504
  Receipt Date: 20210824
  Transmission Date: 20211014
  Serious: Yes (Other)
  Sender: FDA-Public Use
  Company Number: CA-SA-2021SA139430

PATIENT
  Age: 40 Year
  Sex: Male

DRUGS (54)
  1. FLOMAX [Suspect]
     Active Substance: TAMSULOSIN HYDROCHLORIDE
     Indication: SECONDARY PROGRESSIVE MULTIPLE SCLEROSIS
     Dosage: UNK
     Route: 048
  2. BACLOFEN. [Suspect]
     Active Substance: BACLOFEN
     Indication: PRODUCT USED FOR UNKNOWN INDICATION
     Dosage: 30 MG, Q8H
     Route: 048
  3. BACLOFEN. [Suspect]
     Active Substance: BACLOFEN
     Dosage: 10 MG, ONCE DAILY
     Route: 048
  4. DOXEPIN HYDROCHLORIDE. [Suspect]
     Active Substance: DOXEPIN HYDROCHLORIDE
     Indication: PRODUCT USED FOR UNKNOWN INDICATION
     Dosage: 6 MG, QD
     Route: 065
  5. INTERFERON BETA NOS [Suspect]
     Active Substance: INTERFERON BETA
     Dosage: UNK UNK, UNKNOWN FREQ.;
     Route: 058
  6. TECFIDERA [Suspect]
     Active Substance: DIMETHYL FUMARATE
     Indication: PRODUCT USED FOR UNKNOWN INDICATION
     Dosage: UNK UNK, UNKNOWN FREQ.
  7. RABEPRAZOLE SODIUM. [Concomitant]
     Active Substance: RABEPRAZOLE SODIUM
  8. ACETYLSALICYLIC ACID;CODEINE [Concomitant]
  9. TEMAZEPAM. [Suspect]
     Active Substance: TEMAZEPAM
  10. RABEPRAZOLE SODIUM. [Suspect]
     Active Substance: RABEPRAZOLE SODIUM
     Indication: SECONDARY PROGRESSIVE MULTIPLE SCLEROSIS
     Dosage: 20 MG, QD
     Route: 048
  11. LORAZEPAM. [Suspect]
     Active Substance: LORAZEPAM
     Route: 048
  12. BISOPROLOL;HYDROCHLOROTHIAZIDE [Suspect]
     Active Substance: BISOPROLOL FUMARATE\HYDROCHLOROTHIAZIDE
     Indication: SECONDARY PROGRESSIVE MULTIPLE SCLEROSIS
     Dosage: UNK UNK, UNKNOWN FREQ.
     Route: 048
  13. ASPIRIN [ACETYLSALICYLIC ACID] [Concomitant]
     Active Substance: ASPIRIN
     Dosage: UNK
  14. FAMPYRA [Concomitant]
     Active Substance: DALFAMPRIDINE
     Dosage: UNK
  15. FAMPYRA [Concomitant]
     Active Substance: DALFAMPRIDINE
  16. VITAMIN B COMPLEX [Concomitant]
     Active Substance: CYANOCOBALAMIN\DEXPANTHENOL\NIACINAMIDE\PYRIDOXINE HYDROCHLORIDE\RIBOFLAVIN 5^-PHOSPHATE SODIUM\THIAMINE HYDROCHLORIDE\VITAMIN B COMPLEX
  17. BISOPROLOL SALT NOT SPECIFIED [Suspect]
     Active Substance: BISOPROLOL
     Indication: SECONDARY PROGRESSIVE MULTIPLE SCLEROSIS
     Route: 048
  18. LORAZEPAM. [Suspect]
     Active Substance: LORAZEPAM
     Indication: PRODUCT USED FOR UNKNOWN INDICATION
     Dosage: 3 DF DAILY
     Route: 048
  19. MAYZENT [Suspect]
     Active Substance: SIPONIMOD
     Indication: SECONDARY PROGRESSIVE MULTIPLE SCLEROSIS
     Dosage: 3 DF, ONCE DAILY
  20. INTERFERON BETA NOS [Suspect]
     Active Substance: INTERFERON BETA
     Indication: PRODUCT USED FOR UNKNOWN INDICATION
     Route: 058
  21. ATIVAN [Concomitant]
     Active Substance: LORAZEPAM
     Dosage: UNK
  22. VITAMIN B COMPLEX [Concomitant]
     Active Substance: CYANOCOBALAMIN\DEXPANTHENOL\NIACINAMIDE\PYRIDOXINE HYDROCHLORIDE\RIBOFLAVIN 5^-PHOSPHATE SODIUM\THIAMINE HYDROCHLORIDE\VITAMIN B COMPLEX
  23. CILAZAPRIL [Suspect]
     Active Substance: CILAZAPRIL ANHYDROUS
  24. BACLOFEN. [Suspect]
     Active Substance: BACLOFEN
     Indication: PRODUCT USED FOR UNKNOWN INDICATION
     Dosage: 10 MG, QD
     Route: 048
  25. AMLODIPINE BESILATE [Suspect]
     Active Substance: AMLODIPINE BESYLATE
     Indication: SECONDARY PROGRESSIVE MULTIPLE SCLEROSIS
     Dosage: 10 MG, QD
     Route: 048
  26. MIRAPEX [Suspect]
     Active Substance: PRAMIPEXOLE DIHYDROCHLORIDE
     Indication: SECONDARY PROGRESSIVE MULTIPLE SCLEROSIS
     Dosage: 0.25 MG
     Route: 048
  27. MAYZENT [Suspect]
     Active Substance: SIPONIMOD
     Indication: SECONDARY PROGRESSIVE MULTIPLE SCLEROSIS
     Dosage: 3 DF, QD
     Route: 065
  28. AMLODIPINE [Suspect]
     Active Substance: AMLODIPINE BESYLATE
     Indication: SECONDARY PROGRESSIVE MULTIPLE SCLEROSIS
     Dosage: 10 MG, QD
     Route: 048
  29. ALLOPURINOL;BENZBROMARONE [Concomitant]
  30. ATIVAN [Concomitant]
     Active Substance: LORAZEPAM
  31. COVERSYL PLUS [INDAPAMIDE;PERINDOPRIL ERBUMINE] [Concomitant]
     Active Substance: INDAPAMIDE\PERINDOPRIL
  32. CALCIUM ASCORBAT [Concomitant]
  33. LORAZEPAM. [Suspect]
     Active Substance: LORAZEPAM
     Indication: PRODUCT USED FOR UNKNOWN INDICATION
     Dosage: UNK
     Route: 048
  34. GABAPENTIN ENACARBIL [Suspect]
     Active Substance: GABAPENTIN ENACARBIL
     Indication: PRODUCT USED FOR UNKNOWN INDICATION
     Dosage: 100 MG, QD
     Route: 065
  35. DOXEPIN HYDROCHLORIDE. [Suspect]
     Active Substance: DOXEPIN HYDROCHLORIDE
     Indication: PRODUCT USED FOR UNKNOWN INDICATION
     Dosage: 6 MG, QD
  36. DOXEPIN HYDROCHLORIDE. [Suspect]
     Active Substance: DOXEPIN HYDROCHLORIDE
     Dosage: 6 MG, QD
  37. REBIF [Suspect]
     Active Substance: INTERFERON BETA-1A
     Route: 058
  38. COVERSYL PLUS [INDAPAMIDE;PERINDOPRIL ARGININE] [Concomitant]
     Active Substance: INDAPAMIDE\PERINDOPRIL ARGININE
     Dosage: UNK
  39. AMLODIPINE;LISINOPRIL [Suspect]
     Active Substance: AMLODIPINE BESYLATE\LISINOPRIL
     Dosage: 10 MG, ONCE DAILY; ORAL
     Route: 048
  40. SIFROL [Suspect]
     Active Substance: PRAMIPEXOLE
     Indication: SECONDARY PROGRESSIVE MULTIPLE SCLEROSIS
     Dosage: 0.25 MG, ONCE DAILY; ORAL
     Route: 048
  41. ALLOPURINOL;BENZBROMARONE [Concomitant]
     Dosage: UNK
  42. CALCIUM D PANTOTHENATE [Concomitant]
     Active Substance: CALCIUM PANTOTHENATE
  43. BISOPROLOL FUMARATE/HYDROCHLOROTHIAZIDE [Suspect]
     Active Substance: BISOPROLOL FUMARATE\HYDROCHLOROTHIAZIDE
     Indication: SECONDARY PROGRESSIVE MULTIPLE SCLEROSIS
     Dosage: UNK
     Route: 048
  44. BACLOFEN. [Suspect]
     Active Substance: BACLOFEN
     Dosage: 30 MG, Q8H
     Route: 048
  45. ROSUVASTATIN CALCIUM. [Suspect]
     Active Substance: ROSUVASTATIN CALCIUM
     Indication: PRODUCT USED FOR UNKNOWN INDICATION
     Dosage: 5 MG, QD
     Route: 048
  46. AMLODIPINE;LISINOPRIL [Suspect]
     Active Substance: AMLODIPINE BESYLATE\LISINOPRIL
     Indication: SECONDARY PROGRESSIVE MULTIPLE SCLEROSIS
     Dosage: 10 MG
     Route: 048
  47. SIFROL [Suspect]
     Active Substance: PRAMIPEXOLE
     Indication: SECONDARY PROGRESSIVE MULTIPLE SCLEROSIS
     Dosage: 0.25 MG, QD
     Route: 048
  48. VITAMIN D3 [Concomitant]
     Active Substance: CHOLECALCIFEROL
  49. COVERSYL PLUS [INDAPAMIDE;PERINDOPRIL ERBUMINE] [Concomitant]
     Active Substance: INDAPAMIDE\PERINDOPRIL
  50. REBIF [Suspect]
     Active Substance: INTERFERON BETA-1A
     Indication: PRODUCT USED FOR UNKNOWN INDICATION
     Dosage: UNK
     Route: 058
  51. CALCIUM [Concomitant]
     Active Substance: CALCIUM
     Dosage: UNK
  52. VITAMIN D3 [Concomitant]
     Active Substance: CHOLECALCIFEROL
     Dosage: UNK
  53. CALCIUM D PANTOTHENATE [Concomitant]
     Active Substance: CALCIUM PANTOTHENATE
  54. TEMAZEPAM. [Suspect]
     Active Substance: TEMAZEPAM

REACTIONS (25)
  - Erectile dysfunction [Unknown]
  - Dysarthria [Unknown]
  - Gait spastic [Unknown]
  - Insomnia [Unknown]
  - Ataxia [Unknown]
  - Hypoaesthesia [Unknown]
  - Dizziness [Unknown]
  - Multiple sclerosis relapse [Unknown]
  - Hypertonic bladder [Unknown]
  - Product use in unapproved indication [Unknown]
  - Relapsing-remitting multiple sclerosis [Unknown]
  - Pain [Unknown]
  - Pollakiuria [Unknown]
  - Bradycardia [Unknown]
  - Memory impairment [Unknown]
  - Fall [Unknown]
  - Anxiety [Unknown]
  - Muscle spasticity [Unknown]
  - Nocturia [Unknown]
  - Central nervous system lesion [Unknown]
  - Monoparesis [Unknown]
  - Balance disorder [Unknown]
  - Micturition urgency [Unknown]
  - Movement disorder [Unknown]
  - Needle fatigue [Unknown]
